FAERS Safety Report 7545827-2 (Version None)
Quarter: 2011Q2

REPORT INFORMATION
  Report Type: 
  Country: None (occurrence: None)
  Receive Date: 20110613
  Receipt Date: 20110613
  Transmission Date: 20111010
  Serious: No
  Sender: FDA-Public Use
  Company Number: None

PATIENT
  Sex: Female
  Weight: 77.1115 kg

DRUGS (2)
  1. ZICAM NASAL SPRAY [Suspect]
     Indication: DYSPNOEA
     Dates: start: 20040317, end: 20050610
  2. ZICAM NASAL SPRAY [Suspect]
     Indication: SINUS DISORDER
     Dates: start: 20040317, end: 20050610

REACTIONS (2)
  - AGEUSIA [None]
  - ANOSMIA [None]
